FAERS Safety Report 18130570 (Version 3)
Quarter: 2020Q4

REPORT INFORMATION
  Report Type: Report from Study
  Country: CA (occurrence: CA)
  Receive Date: 20200810
  Receipt Date: 20201026
  Transmission Date: 20210113
  Serious: Yes (Hospitalization)
  Sender: FDA-Public Use
  Company Number: CA-JNJFOC-20200801333

PATIENT
  Age: 50 Year
  Sex: Female
  Weight: 48 kg

DRUGS (2)
  1. STELARA [Suspect]
     Active Substance: USTEKINUMAB
     Indication: CROHN^S DISEASE
     Dosage: ON 11-SEP-2020, THE PATIENT RECEIVED 3RD INJECTION WITH THE DOSE OF 90 MG.
     Route: 058
     Dates: start: 20200608
  2. STELARA [Suspect]
     Active Substance: USTEKINUMAB
     Route: 058
     Dates: start: 2020

REACTIONS (3)
  - Abscess [Unknown]
  - Perforation [Unknown]
  - Intestinal resection [Unknown]

NARRATIVE: CASE EVENT DATE: 202007
